FAERS Safety Report 8620333-2 (Version None)
Quarter: 2012Q3

REPORT INFORMATION
  Report Type: 
  Country: None (occurrence: None)
  Receive Date: 20120824
  Receipt Date: 20120816
  Transmission Date: 20120928
  Serious: Yes (Hospitalization)
  Sender: FDA-Public Use
  Company Number: US-MUTUAL PHARMACEUTICAL COMPANY, INC.-CLCY20120119

PATIENT
  Sex: Male

DRUGS (2)
  1. ALLOPURINOL [Suspect]
     Indication: GOUT
     Route: 065
     Dates: start: 20120309
  2. COLCRYS [Suspect]
     Indication: GOUT
     Route: 065
     Dates: start: 20120309

REACTIONS (2)
  - MONARTHRITIS [None]
  - JOINT EFFUSION [None]
